FAERS Safety Report 5647313-3 (Version None)
Quarter: 2008Q1

REPORT INFORMATION
  Report Type: 
  Country: None (occurrence: None)
  Receive Date: 20080228
  Receipt Date: 20080221
  Transmission Date: 20080703
  Serious: Yes (Hospitalization, Other)
  Sender: FDA-Public Use
  Company Number: URSO-2008-025

PATIENT
  Age: 55 Year
  Sex: Female

DRUGS (7)
  1. URSO 250 [Suspect]
     Indication: HEPATIC FUNCTION ABNORMAL
     Dosage: 300 MG/DAY ORAL
     Route: 048
     Dates: start: 20070511, end: 20070524
  2. REMICADE [Suspect]
     Indication: RHEUMATOID ARTHRITIS
     Dosage: 3 DOSES OF 200 MG INTRAVENOUS DRIP
     Route: 041
     Dates: start: 20070209, end: 20070406
  3. REMICADE [Suspect]
     Indication: RHEUMATOID ARTHRITIS
     Dosage: 3 DOSES OF 200 MG INTRAVENOUS DRIP
     Route: 041
     Dates: start: 20070126
  4. RHEUMATREX [Suspect]
     Indication: RHEUMATOID ARTHRITIS
     Dosage: 8 MG/WEEK ORAL
     Route: 048
     Dates: start: 20051122
  5. FOLIC ACID [Concomitant]
  6. ACTONEL (SODIUM RISEDRONATE HYDRATE) [Concomitant]
  7. PREDNISOLONE [Concomitant]

REACTIONS (1)
  - VASCULITIS NECROTISING [None]
